FAERS Safety Report 6341510-X (Version None)
Quarter: 2009Q3

REPORT INFORMATION
  Report Type: 
  Country: None (occurrence: None)
  Receive Date: 20090904
  Receipt Date: 20090827
  Transmission Date: 20100115
  Serious: Yes (Other)
  Sender: FDA-Public Use
  Company Number: PH-NOVOPROD-291113

PATIENT
  Sex: Female

DRUGS (1)
  1. MIXTARD 30 NOVOLET [Suspect]
     Indication: DIABETES MELLITUS

REACTIONS (1)
  - STILLBIRTH [None]
